FAERS Safety Report 5644971-4 (Version None)
Quarter: 2008Q1

REPORT INFORMATION
  Report Type: 
  Country: None (occurrence: None)
  Receive Date: 20080229
  Receipt Date: 20071210
  Transmission Date: 20080703
  Serious: No
  Sender: FDA-Public Use
  Company Number: A0698149A

PATIENT
  Age: 39 Year
  Sex: Female

DRUGS (2)
  1. VALTREX [Suspect]
     Indication: GENITAL HERPES
     Dosage: 500MG TWICE PER DAY
     Route: 048
     Dates: start: 20071127
  2. BIRTH CONTROL [Concomitant]

REACTIONS (5)
  - DRY THROAT [None]
  - LOCAL SWELLING [None]
  - PROCTITIS [None]
  - TONGUE DISORDER [None]
  - VEIN DISORDER [None]
